FAERS Safety Report 4784768-0 (Version None)
Quarter: 2005Q3

REPORT INFORMATION
  Report Type: 
  Country: None (occurrence: None)
  Receive Date: 20050930
  Receipt Date: 20050517
  Transmission Date: 20060218
  Serious: Yes (Other)
  Sender: FDA-Public Use
  Company Number: PHRM2005FR01599

PATIENT
  Age: 82 Year
  Sex: Female
  Weight: 60 kg

DRUGS (1)
  1. ZOMETA [Suspect]
     Indication: MULTIPLE MYELOMA
     Dosage: UNK, UNK
     Route: 042
     Dates: start: 20030925, end: 20050405

REACTIONS (9)
  - ABSCESS [None]
  - ASEPTIC NECROSIS BONE [None]
  - GINGIVAL CYST [None]
  - GINGIVAL ULCERATION [None]
  - IMPAIRED HEALING [None]
  - JAW DISORDER [None]
  - OSTEONECROSIS [None]
  - TOOTH EXTRACTION [None]
  - WOUND DEBRIDEMENT [None]
